FAERS Safety Report 4771008-1 (Version None)
Quarter: 2005Q3

REPORT INFORMATION
  Report Type: 
  Country: None (occurrence: None)
  Receive Date: 20050914
  Receipt Date: 20050901
  Transmission Date: 20060218
  Serious: Yes (Hospitalization)
  Sender: FDA-Public Use
  Company Number: GBR-2005-0001870

PATIENT
  Age: 56 Year
  Sex: Male

DRUGS (12)
  1. OXYCONTIN [Suspect]
     Indication: NEUROPATHIC PAIN
     Dosage: SEE IMAGE
     Route: 048
     Dates: end: 20041115
  2. OXYCONTIN [Suspect]
     Indication: NEUROPATHIC PAIN
     Dosage: SEE IMAGE
     Route: 048
     Dates: start: 20050824
  3. OXYCONTIN [Concomitant]
  4. ZOLPIDEM TARTRATE [Concomitant]
  5. ALCOHOL [Concomitant]
  6. GLUCOPHAGE [Concomitant]
  7. LESCOL (FLUVASTATIN SODUM) [Concomitant]
  8. IBUX [Concomitant]
  9. NEURONTIN [Concomitant]
  10. PARALGIN FORTE [Concomitant]
  11. PARACETAMOL [Concomitant]
  12. AMARYL [Concomitant]

REACTIONS (2)
  - CARDIAC FAILURE CONGESTIVE [None]
  - CONGESTIVE CARDIOMYOPATHY [None]
